FAERS Safety Report 19671186 (Version 2)
Quarter: 2021Q3

REPORT INFORMATION
  Report Type: Report from Study
  Country: US (occurrence: US)
  Receive Date: 20210806
  Receipt Date: 20210818
  Transmission Date: 20211014
  Serious: Yes (Death)
  Sender: FDA-Public Use
  Company Number: US-SEATTLE GENETICS-2021SGN02586

PATIENT
  Age: 48 Year
  Sex: Female

DRUGS (6)
  1. TOREMIFENE [Suspect]
     Active Substance: TOREMIFENE
     Indication: PRODUCT USED FOR UNKNOWN INDICATION
     Dosage: 60 MG, QD
  2. TUCATINIB [Suspect]
     Active Substance: TUCATINIB
     Indication: BREAST CANCER FEMALE
     Dosage: UNK
  3. TUCATINIB [Suspect]
     Active Substance: TUCATINIB
     Dosage: UNK
  4. TUCATINIB [Suspect]
     Active Substance: TUCATINIB
     Dosage: UNK
  5. TUCATINIB [Suspect]
     Active Substance: TUCATINIB
     Dosage: UNK
  6. GEMZAR [Suspect]
     Active Substance: GEMCITABINE HYDROCHLORIDE
     Indication: PRODUCT USED FOR UNKNOWN INDICATION
     Dosage: UNK, QWEEK
     Route: 042

REACTIONS (6)
  - Red blood cell count decreased [Unknown]
  - Constipation [Unknown]
  - White blood cell count decreased [Unknown]
  - Product use issue [Unknown]
  - Death [Fatal]
  - Alopecia [Unknown]

NARRATIVE: CASE EVENT DATE: 20210725
